FAERS Safety Report 7628759-0 (Version None)
Quarter: 2011Q3

REPORT INFORMATION
  Report Type: 
  Country: None (occurrence: None)
  Receive Date: 20110722
  Receipt Date: 20110711
  Transmission Date: 20111222
  Serious: Yes (Hospitalization, Other)
  Sender: FDA-Public Use
  Company Number: US-BAYER-2011-019558

PATIENT
  Age: 29 Year
  Sex: Female
  Weight: 94.331 kg

DRUGS (8)
  1. YASMIN [Suspect]
     Indication: CONTRACEPTION
     Dosage: UNK
     Route: 048
     Dates: start: 20060201, end: 20060601
  2. YASMIN [Suspect]
     Dosage: UNK
     Route: 048
     Dates: start: 20060801, end: 20060801
  3. CODEINE SULFATE [Concomitant]
  4. HYDROCODONE BITARTRATE [Concomitant]
     Indication: PAIN
     Dosage: 5 MG, UNK
     Dates: start: 20061004
  5. IBUPROFEN [Concomitant]
     Dosage: 600 MG, UNK
  6. PREDNISONE [Concomitant]
     Indication: DERMATITIS CONTACT
  7. NAPROXEN [Concomitant]
     Dosage: UNK
     Dates: start: 20060801
  8. BACTROBAN [Concomitant]
     Dosage: UNK
     Dates: start: 20060801

REACTIONS (7)
  - OEDEMA PERIPHERAL [None]
  - DYSPNOEA [None]
  - DEEP VEIN THROMBOSIS [None]
  - PULMONARY EMBOLISM [None]
  - PAIN IN EXTREMITY [None]
  - HEART INJURY [None]
  - RENAL INJURY [None]
